FAERS Safety Report 8050766-7 (Version None)
Quarter: 2012Q1

REPORT INFORMATION
  Report Type: 
  Country: None (occurrence: None)
  Receive Date: 20120117
  Receipt Date: 20120111
  Transmission Date: 20120608
  Serious: Yes (Other)
  Sender: FDA-Public Use
  Company Number: AU-JNJFOC-20110809924

PATIENT
  Sex: Female

DRUGS (5)
  1. STELARA [Suspect]
     Route: 058
     Dates: start: 20110316, end: 20110316
  2. STELARA [Suspect]
     Route: 058
     Dates: start: 20110608, end: 20110608
  3. STELARA [Suspect]
     Route: 058
     Dates: start: 20100928, end: 20100928
  4. STELARA [Suspect]
     Indication: PSORIASIS
     Route: 058
     Dates: start: 20101222, end: 20101222
  5. STELARA [Suspect]
     Route: 058
     Dates: start: 20100901, end: 20100901

REACTIONS (2)
  - PSORIASIS [None]
  - STREPTOCOCCAL INFECTION [None]
